FAERS Safety Report 16708282 (Version 1)
Quarter: 2019Q3

REPORT INFORMATION
  Report Type: Report from Study
  Country: IT (occurrence: IT)
  Receive Date: 20190816
  Receipt Date: 20190816
  Transmission Date: 20191004
  Serious: Yes (Other)
  Sender: FDA-Public Use
  Company Number: IT-BRISTOL-MYERS SQUIBB COMPANY-BMS-2019-077728

PATIENT
  Age: 42 Year
  Sex: Female

DRUGS (1)
  1. IPILIMUMAB [Suspect]
     Active Substance: IPILIMUMAB
     Indication: MALIGNANT MELANOMA
     Dosage: 1 DOSAGE FORM PER CYCLICAL
     Route: 041
     Dates: start: 20190107

REACTIONS (7)
  - Nausea [Recovering/Resolving]
  - Hepatotoxicity [Recovering/Resolving]
  - Chest pain [Recovering/Resolving]
  - Cytokine release syndrome [Recovering/Resolving]
  - Dry skin [Recovering/Resolving]
  - Pyrexia [Recovering/Resolving]
  - Dyspnoea [Recovering/Resolving]

NARRATIVE: CASE EVENT DATE: 20190116
